FAERS Safety Report 23382760 (Version 1)
Quarter: 2024Q1

REPORT INFORMATION
  Report Type: Spontaneous
  Country: FR (occurrence: FR)
  Receive Date: 20240109
  Receipt Date: 20240109
  Transmission Date: 20240409
  Serious: Yes (Life-Threatening, Hospitalization)
  Sender: FDA-Public Use
  Company Number: None

PATIENT
  Age: 43 Year
  Sex: Male
  Weight: 68 kg

DRUGS (5)
  1. CLOZAPINE [Suspect]
     Active Substance: CLOZAPINE
     Indication: Psychiatric decompensation
     Dosage: 500 MILLIGRAM, QD
     Route: 048
     Dates: start: 20231113
  2. RIVOTRIL [Suspect]
     Active Substance: CLONAZEPAM
     Indication: Psychiatric decompensation
     Dosage: 10 MILLIGRAM, QD (5 X 2 MG/DAY)
     Route: 048
     Dates: start: 20231120, end: 20231120
  3. RIVOTRIL [Suspect]
     Active Substance: CLONAZEPAM
     Dosage: 8 MILLIGRAM, BID (4 X 2 MG/DAY X 2/DAY)
     Route: 048
     Dates: start: 20231121, end: 20231123
  4. DIAZEPAM [Suspect]
     Active Substance: DIAZEPAM
     Indication: Psychiatric decompensation
     Dosage: 40 MILLIGRAM, QD
     Route: 048
     Dates: start: 202311
  5. LOXAPINE SUCCINATE [Suspect]
     Active Substance: LOXAPINE SUCCINATE
     Indication: Psychiatric decompensation
     Dosage: 600 MILLIGRAM, QD
     Route: 048
     Dates: start: 202311

REACTIONS (2)
  - Acute respiratory failure [Recovered/Resolved]
  - Faecaloma [Recovered/Resolved]

NARRATIVE: CASE EVENT DATE: 20231124
